FAERS Safety Report 24780220 (Version 1)
Quarter: 2024Q4

REPORT INFORMATION
  Report Type: Spontaneous
  Country: US (occurrence: US)
  Receive Date: 20241227
  Receipt Date: 20241227
  Transmission Date: 20250115
  Serious: No
  Sender: ROCHE
  Company Number: US-ROCHE-10000166073

PATIENT
  Age: 52 Year
  Sex: Female

DRUGS (1)
  1. XOLAIR [Suspect]
     Active Substance: OMALIZUMAB
     Indication: Product used for unknown indication
     Dosage: DOSE-150MG/X2
     Route: 065

REACTIONS (2)
  - Therapeutic product effect decreased [Unknown]
  - Expired product administered [Unknown]
